FAERS Safety Report 24132790 (Version 2)
Quarter: 2024Q3

REPORT INFORMATION
  Report Type: Spontaneous
  Country: US (occurrence: US)
  Receive Date: 20240724
  Receipt Date: 20240812
  Transmission Date: 20241017
  Serious: Yes (Hospitalization)
  Sender: MYLAN
  Company Number: US-MYLANLABS-2024M1068382

PATIENT
  Age: 16 Year
  Sex: Male

DRUGS (17)
  1. OCTREOTIDE [Suspect]
     Active Substance: OCTREOTIDE\OCTREOTIDE ACETATE
     Indication: Cerebral microangiopathy
     Dosage: UNK
     Route: 065
  2. OCTREOTIDE [Suspect]
     Active Substance: OCTREOTIDE\OCTREOTIDE ACETATE
     Indication: Retinal microangiopathy
  3. OCTREOTIDE [Suspect]
     Active Substance: OCTREOTIDE\OCTREOTIDE ACETATE
     Indication: Cerebral calcification
  4. OCTREOTIDE [Suspect]
     Active Substance: OCTREOTIDE\OCTREOTIDE ACETATE
     Indication: Nervous system cyst
  5. SIROLIMUS [Suspect]
     Active Substance: SIROLIMUS
     Indication: Cerebral microangiopathy
     Dosage: UNK
     Route: 065
  6. SIROLIMUS [Suspect]
     Active Substance: SIROLIMUS
     Indication: Retinal microangiopathy
  7. SIROLIMUS [Suspect]
     Active Substance: SIROLIMUS
     Indication: Cerebral calcification
  8. SIROLIMUS [Suspect]
     Active Substance: SIROLIMUS
     Indication: Nervous system cyst
  9. CLOBAZAM [Suspect]
     Active Substance: CLOBAZAM
     Indication: Generalised tonic-clonic seizure
     Dosage: UNK
     Route: 065
  10. DANAZOL [Suspect]
     Active Substance: DANAZOL
     Indication: Cerebral microangiopathy
     Dosage: UNK
     Route: 065
  11. DANAZOL [Suspect]
     Active Substance: DANAZOL
     Indication: Retinal microangiopathy
  12. DANAZOL [Suspect]
     Active Substance: DANAZOL
     Indication: Cerebral calcification
  13. DANAZOL [Suspect]
     Active Substance: DANAZOL
     Indication: Nervous system cyst
  14. BEVACIZUMAB [Concomitant]
     Active Substance: BEVACIZUMAB
     Indication: Cerebral microangiopathy
     Dosage: 5 MILLIGRAM/KILOGRAM, BIWEEKLY (OVER 60-90?MINUTES, EVERY 2?WEEKS)
     Route: 042
  15. BEVACIZUMAB [Concomitant]
     Active Substance: BEVACIZUMAB
     Indication: Retinal microangiopathy
  16. BEVACIZUMAB [Concomitant]
     Active Substance: BEVACIZUMAB
     Indication: Cerebral calcification
  17. BEVACIZUMAB [Concomitant]
     Active Substance: BEVACIZUMAB
     Indication: Nervous system cyst

REACTIONS (2)
  - Drug ineffective [Unknown]
  - Off label use [Unknown]
